FAERS Safety Report 6743345-2 (Version None)
Quarter: 2010Q2

REPORT INFORMATION
  Report Type: 
  Country: None (occurrence: None)
  Receive Date: 20100527
  Receipt Date: 20100512
  Transmission Date: 20101027
  Serious: Yes (Hospitalization)
  Sender: FDA-Public Use
  Company Number: US-ELI_LILLY_AND_COMPANY-US201005005909

PATIENT
  Sex: Female

DRUGS (4)
  1. FORTEO [Suspect]
     Indication: OSTEOPOROSIS
     Dosage: 20 UG, DAILY (1/D)
     Dates: start: 20081111
  2. SEROQUEL [Concomitant]
     Dosage: 100 MG, EACH EVENING
  3. KLOR-CON [Concomitant]
     Dosage: 20 MEQ, DAILY (1/D)
  4. CYMBALTA [Concomitant]
     Dosage: 60 MG, DAILY (1/D)
     Dates: start: 20100401

REACTIONS (3)
  - BLOOD SODIUM DECREASED [None]
  - HOSPITALISATION [None]
  - URINARY TRACT INFECTION [None]
